FAERS Safety Report 9870124 (Version 1)
Quarter: 2014Q1

REPORT INFORMATION
  Report Type: Spontaneous
  Country: TR (occurrence: None)
  Receive Date: 20140131
  Receipt Date: 20140131
  Transmission Date: 20141002
  Serious: Yes (Other)
  Sender: FDA-Public Use
  Company Number: IMP_06956_2014

PATIENT
  Age: 29 Year
  Sex: Male

DRUGS (1)
  1. BUPROPION [Suspect]
     Indication: BIPOLAR I DISORDER
     Dosage: DF

REACTIONS (5)
  - Hypomania [None]
  - Logorrhoea [None]
  - Insomnia [None]
  - Euphoric mood [None]
  - Libido increased [None]
